FAERS Safety Report 21763298 (Version 1)
Quarter: 2022Q4

REPORT INFORMATION
  Report Type: Spontaneous
  Country: US (occurrence: US)
  Receive Date: 20221221
  Receipt Date: 20221221
  Transmission Date: 20230112
  Serious: Yes (Hospitalization)
  Sender: FDA-Public Use
  Company Number: US-TEVA-2022-US-2837029

PATIENT
  Age: 81 Year
  Sex: Male
  Weight: 82.55 kg

DRUGS (1)
  1. TORSEMIDE [Suspect]
     Active Substance: TORSEMIDE
     Indication: Pulmonary oedema
     Dosage: TAKING 1/2 A ONE A DAY NOW
     Route: 065

REACTIONS (3)
  - Pulmonary oedema [Unknown]
  - Gait disturbance [Unknown]
  - Dyspnoea [Unknown]
